FAERS Safety Report 25157550 (Version 1)
Quarter: 2025Q2

REPORT INFORMATION
  Report Type: Other
  Country: CN (occurrence: CN)
  Receive Date: 20250403
  Receipt Date: 20250403
  Transmission Date: 20250716
  Serious: Yes (Other)
  Sender: XCOVERY HOLDINGS
  Company Number: CN-XCO-202500004

PATIENT
  Age: 52 Year
  Sex: Male

DRUGS (2)
  1. ENSARTINIB HYDROCHLORIDE [Suspect]
     Active Substance: ENSARTINIB HYDROCHLORIDE
     Indication: Lung adenocarcinoma
     Route: 048
  2. ENSARTINIB HYDROCHLORIDE [Suspect]
     Active Substance: ENSARTINIB HYDROCHLORIDE
     Indication: ALK gene rearrangement positive
     Route: 048

REACTIONS (2)
  - Tubulointerstitial nephritis [Unknown]
  - IgA nephropathy [Unknown]
